FAERS Safety Report 6833496 (Version 4)
Quarter: 2014Q2

REPORT INFORMATION
  Report Type: Spontaneous
  Country: US (occurrence: US)
  Receive Date: 20081205
  Receipt Date: 20140414
  Transmission Date: 20141212
  Serious: Yes (Other)
  Sender: FDA-Public Use
  Company Number: US-BIOGENIDEC-2008BI031998

PATIENT
  Age: 41 Year
  Sex: Male

DRUGS (1)
  1. TYSABRI [Suspect]
     Indication: MULTIPLE SCLEROSIS
     Route: 042
     Dates: start: 20080822, end: 20080926

REACTIONS (4)
  - Hepatitis A [Unknown]
  - Hepatitis C [Not Recovered/Not Resolved]
  - Liver disorder [Unknown]
  - Paraesthesia [Unknown]
